FAERS Safety Report 9441652 (Version 4)
Quarter: 2013Q4

REPORT INFORMATION
  Report Type: Spontaneous
  Country: US (occurrence: US)
  Receive Date: 20130806
  Receipt Date: 20131122
  Transmission Date: 20140711
  Serious: Yes (Hospitalization, Other)
  Sender: FDA-Public Use
  Company Number: US-BIOGENIDEC-2013BI068873

PATIENT
  Sex: Female

DRUGS (8)
  1. TECFIDERA [Suspect]
     Indication: MULTIPLE SCLEROSIS
     Route: 048
     Dates: start: 20130525
  2. ZOLOFT [Concomitant]
  3. LIPITOR [Concomitant]
  4. SEROQUEL [Concomitant]
  5. DOCUSATE SODIUM [Concomitant]
  6. VITAMIN D [Concomitant]
  7. BABY ASPIRIN [Concomitant]
  8. SERTRALINE [Concomitant]

REACTIONS (4)
  - Hot flush [Not Recovered/Not Resolved]
  - Suicide attempt [Unknown]
  - Flushing [Unknown]
  - Major depression [Unknown]
